FAERS Safety Report 6983623-5 (Version None)
Quarter: 2010Q3

REPORT INFORMATION
  Report Type: 
  Country: None (occurrence: None)
  Receive Date: 20100914
  Receipt Date: 20081016
  Transmission Date: 20110219
  Serious: No
  Sender: FDA-Public Use
  Company Number: US-WYE-H06426008

PATIENT
  Age: 34 Year
  Sex: Female

DRUGS (2)
  1. ADVIL LIQUI-GELS [Suspect]
     Dosage: UNKNOWN
     Route: 048
  2. TYLENOL [Suspect]
     Dosage: UNKNOWN
     Route: 048

REACTIONS (1)
  - HANGOVER [None]
